FAERS Safety Report 8445580-4 (Version None)
Quarter: 2012Q2

REPORT INFORMATION
  Report Type: 
  Country: None (occurrence: None)
  Receive Date: 20120618
  Receipt Date: 20120608
  Transmission Date: 20120825
  Serious: Yes (Other)
  Sender: FDA-Public Use
  Company Number: US-ASTRAZENECA-2012SE38797

PATIENT
  Age: 50 Year
  Sex: Female

DRUGS (2)
  1. SEROQUEL [Suspect]
     Indication: BIPOLAR DISORDER
     Route: 048
  2. SEROQUEL [Suspect]
     Route: 048

REACTIONS (7)
  - MANIA [None]
  - INSOMNIA [None]
  - DRUG INEFFECTIVE [None]
  - MALAISE [None]
  - HEADACHE [None]
  - SUICIDAL BEHAVIOUR [None]
  - DECREASED APPETITE [None]
